FAERS Safety Report 5951186-9 (Version None)
Quarter: 2008Q4

REPORT INFORMATION
  Report Type: 
  Country: None (occurrence: None)
  Receive Date: 20081112
  Receipt Date: 20081112
  Transmission Date: 20090506
  Serious: Yes (Life-Threatening, Hospitalization, Disabling)
  Sender: FDA-Public Use
  Company Number: None

PATIENT
  Sex: Male
  Weight: 95.709 kg

DRUGS (6)
  1. ACTOS [Suspect]
     Indication: HYPERGLYCAEMIA
     Dosage: 45MG DAILY PO
     Route: 048
     Dates: start: 20080901, end: 20081002
  2. COUMADIN [Concomitant]
  3. CRESTOR [Concomitant]
  4. PROTONIX [Concomitant]
  5. VITAMIN SUPPLIMENT [Concomitant]
  6. MILK OF MAGNESIA [Concomitant]

REACTIONS (1)
  - CARDIAC FAILURE CONGESTIVE [None]
